FAERS Safety Report 5350724-7 (Version None)
Quarter: 2007Q2

REPORT INFORMATION
  Report Type: 
  Country: None (occurrence: None)
  Receive Date: 20070606
  Receipt Date: 20070606
  Transmission Date: 20071010
  Serious: Yes (Life-Threatening)
  Sender: FDA-Public Use
  Company Number: None

PATIENT
  Sex: Male

DRUGS (1)
  1. ZYVOX [Suspect]
     Indication: STAPHYLOCOCCAL INFECTION
     Dosage: 600 MG BID PO
     Route: 048
     Dates: start: 20061031, end: 20061122

REACTIONS (6)
  - EPISTAXIS [None]
  - HAEMATOCRIT DECREASED [None]
  - MULTI-ORGAN FAILURE [None]
  - ORAL INTAKE REDUCED [None]
  - RENAL IMPAIRMENT [None]
  - THROMBOCYTOPENIA [None]
